FAERS Safety Report 12750152 (Version 2)
Quarter: 2017Q1

REPORT INFORMATION
  Report Type: Spontaneous
  Country: US (occurrence: US)
  Receive Date: 20160915
  Receipt Date: 20170323
  Transmission Date: 20170428
  Serious: Yes (Hospitalization)
  Sender: FDA-Public Use
  Company Number: US-ASTELLAS-2016US000186

PATIENT
  Age: 82 Year
  Sex: Male

DRUGS (2)
  1. XTANDI [Suspect]
     Active Substance: ENZALUTAMIDE
     Indication: PROSTATE CANCER
     Route: 048
  2. XTANDI [Suspect]
     Active Substance: ENZALUTAMIDE
     Route: 048
     Dates: start: 20170113, end: 20170317

REACTIONS (15)
  - Weight decreased [Unknown]
  - Transient ischaemic attack [Unknown]
  - Dizziness [Unknown]
  - Vertigo [Unknown]
  - Pollakiuria [Recovered/Resolved]
  - Ageusia [Recovered/Resolved]
  - Asthenia [Unknown]
  - Nocturia [Not Recovered/Not Resolved]
  - Arthralgia [Unknown]
  - Fatigue [Recovered/Resolved]
  - Decreased appetite [Unknown]
  - Back pain [Not Recovered/Not Resolved]
  - Bone pain [Unknown]
  - Diarrhoea [Unknown]
  - Headache [Unknown]

NARRATIVE: CASE EVENT DATE: 20151224
